FAERS Safety Report 14610258 (Version 2)
Quarter: 2018Q2

REPORT INFORMATION
  Report Type: Report from Study
  Country: BE (occurrence: BE)
  Receive Date: 20180307
  Receipt Date: 20180628
  Transmission Date: 20180711
  Serious: Yes (Hospitalization, Other)
  Sender: FDA-Public Use
  Company Number: BE-PFIZER INC-2018090472

PATIENT
  Age: 78 Year
  Sex: Female
  Weight: 81 kg

DRUGS (23)
  1. CARBOPLATIN. [Suspect]
     Active Substance: CARBOPLATIN
     Dosage: 1 UNK, WEEKLY (1.5 AUC WEEKLY)
     Route: 042
     Dates: start: 20160609
  2. PACLITAXEL. [Suspect]
     Active Substance: PACLITAXEL
     Dosage: 60 MG/M2, WEEKLY
     Route: 042
     Dates: start: 20160121
  3. PACLITAXEL. [Suspect]
     Active Substance: PACLITAXEL
     Dosage: 60 MG/M2, WEEKLY
     Route: 042
     Dates: start: 20160128
  4. LASIX [Concomitant]
     Active Substance: FUROSEMIDE
     Dosage: UNK
     Dates: start: 20151231, end: 20151231
  5. FORLAX [Concomitant]
     Active Substance: POLYETHYLENE GLYCOL 4000
     Dosage: UNK
     Dates: start: 201512
  6. PACLITAXEL. [Suspect]
     Active Substance: PACLITAXEL
     Dosage: 60 MG/M2, WEEKLY
     Route: 042
     Dates: start: 20160609
  7. ZOFRAN [Concomitant]
     Active Substance: ONDANSETRON HYDROCHLORIDE
     Indication: INFUSION RELATED REACTION
     Dosage: UNK
     Dates: start: 20151217
  8. PACLITAXEL. [Suspect]
     Active Substance: PACLITAXEL
     Dosage: 80 MG/M2, WEEKLY
     Route: 042
     Dates: start: 20151224
  9. CARBOPLATIN. [Suspect]
     Active Substance: CARBOPLATIN
     Dosage: 1 UNK, WEEKLY (2 AUC WEEKLY)
     Route: 042
     Dates: start: 20160128
  10. DEXAMETHASON /00016001/ [Concomitant]
     Active Substance: DEXAMETHASONE
     Indication: INFUSION RELATED REACTION
     Dosage: UNK
     Route: 065
     Dates: start: 20151217
  11. CARBOPLATIN. [Suspect]
     Active Substance: CARBOPLATIN
     Indication: OVARIAN CANCER
     Dosage: 1 UNK, WEEKLY (2 AUC WEEKLY)
     Route: 042
     Dates: start: 20151217
  12. PACLITAXEL. [Suspect]
     Active Substance: PACLITAXEL
     Dosage: 60 MG/M2, WEEKLY
     Route: 042
     Dates: start: 20160210
  13. BEVACIZUMAB. [Suspect]
     Active Substance: BEVACIZUMAB
     Dosage: 1095 MG, EVERY 3 WEEKS
     Route: 042
     Dates: start: 20160128
  14. BEVACIZUMAB. [Suspect]
     Active Substance: BEVACIZUMAB
     Dosage: 1080 MG, EVERY 3 WEEKS
     Route: 042
     Dates: start: 20160218
  15. CARBOPLATIN. [Suspect]
     Active Substance: CARBOPLATIN
     Dosage: 1 UNK, WEEKLY (2 AUC WEEKLY)
     Route: 042
     Dates: start: 20160121
  16. CARBOPLATIN. [Suspect]
     Active Substance: CARBOPLATIN
     Dosage: 1 UNK, WEEKLY (2 AUC WEEKLY)
     Route: 042
     Dates: start: 20160210
  17. ZANTAC [Concomitant]
     Active Substance: RANITIDINE HYDROCHLORIDE
     Indication: INFUSION RELATED REACTION
     Dosage: UNK
     Dates: start: 20151217
  18. BEVACIZUMAB. [Suspect]
     Active Substance: BEVACIZUMAB
     Dosage: 1170 MG, EVERY 3 WEEKS
     Route: 042
     Dates: start: 20160107
  19. XYZALL [Concomitant]
     Active Substance: LEVOCETIRIZINE DIHYDROCHLORIDE
     Indication: INFUSION RELATED REACTION
     Dosage: UNK
     Dates: start: 20151217
  20. CLEXANE [Concomitant]
     Active Substance: ENOXAPARIN SODIUM
     Dosage: UNK
     Dates: start: 20151207, end: 20151222
  21. CARBOPLATIN. [Suspect]
     Active Substance: CARBOPLATIN
     Dosage: 1 UNK, WEEKLY (2 AUC WEEKLY)
     Route: 042
     Dates: start: 20151224
  22. PACLITAXEL. [Suspect]
     Active Substance: PACLITAXEL
     Indication: OVARIAN CANCER
     Dosage: 80 MG/M2, WEEKLY
     Route: 042
     Dates: start: 20151217
  23. BEVACIZUMAB. [Suspect]
     Active Substance: BEVACIZUMAB
     Indication: OVARIAN CANCER
     Dosage: 1215 MG, EVERY 3 WEEKS
     Route: 042
     Dates: start: 20151217

REACTIONS (6)
  - Peripheral sensory neuropathy [Recovered/Resolved]
  - Lymphorrhoea [Recovered/Resolved]
  - Proteinuria [Unknown]
  - Haemorrhagic diathesis [Recovered/Resolved]
  - Neutropenia [Recovered/Resolved]
  - Epistaxis [Recovered/Resolved]

NARRATIVE: CASE EVENT DATE: 20151231
